FAERS Safety Report 4408310-9 (Version None)
Quarter: 2004Q3

REPORT INFORMATION
  Report Type: 
  Country: None (occurrence: None)
  Receive Date: 20040726
  Receipt Date: 20040726
  Transmission Date: 20050211
  Serious: Yes (Other)
  Sender: FDA-Public Use
  Company Number: None

PATIENT
  Age: 61 Year
  Sex: Male
  Weight: 81.6475 kg

DRUGS (8)
  1. APROTININ [Suspect]
     Indication: CORONARY ARTERY SURGERY
     Dosage: 200CC IV OVER 30 MI AND OVER 4 HR.
     Route: 042
     Dates: start: 20040121
  2. . [Concomitant]
  3. LIPITOR [Concomitant]
  4. ASPIRIN [Concomitant]
  5. ISORBIDE [Concomitant]
  6. HYDROCHLOROTHIAZIDE [Concomitant]
  7. METOPROLOL [Concomitant]
  8. PROSCAR [Concomitant]

REACTIONS (4)
  - ELECTROCARDIOGRAM T WAVE INVERSION [None]
  - INFLAMMATION [None]
  - MYOCARDIAL ISCHAEMIA [None]
  - POST PROCEDURAL COMPLICATION [None]
